FAERS Safety Report 6208641-6 (Version None)
Quarter: 2009Q2

REPORT INFORMATION
  Report Type: 
  Country: None (occurrence: None)
  Receive Date: 20090522
  Receipt Date: 20090306
  Transmission Date: 20091009
  Serious: No
  Sender: FDA-Public Use
  Company Number: 8043734

PATIENT
  Age: 33 Year
  Sex: Female
  Weight: 64.5 kg

DRUGS (1)
  1. CIMZIA [Suspect]
     Indication: CROHN'S DISEASE
     Dosage: 400 MG SC
     Route: 058
     Dates: start: 20090205

REACTIONS (8)
  - BREAST DISCHARGE [None]
  - DIZZINESS [None]
  - FATIGUE [None]
  - HEADACHE [None]
  - INJECTION SITE PAIN [None]
  - NAUSEA [None]
  - VOMITING [None]
  - WEIGHT INCREASED [None]
